FAERS Safety Report 24367403 (Version 1)
Quarter: 2024Q3

REPORT INFORMATION
  Report Type: Spontaneous
  Country: US (occurrence: US)
  Receive Date: 20240926
  Receipt Date: 20240926
  Transmission Date: 20241016
  Serious: No
  Sender: ROCHE
  Company Number: US-ROCHE-10000090740

PATIENT
  Sex: Male

DRUGS (1)
  1. HEMLIBRA [Suspect]
     Active Substance: EMICIZUMAB-KXWH
     Indication: Factor VIII deficiency
     Dosage: STRENGTH: 60 MG/0.4 ML, 300 MG/2 ML
     Route: 058
     Dates: start: 202207

REACTIONS (4)
  - Arthralgia [Unknown]
  - Haemorrhage [Unknown]
  - Joint effusion [Unknown]
  - Haemarthrosis [Unknown]
